FAERS Safety Report 4287277-0 (Version None)
Quarter: 2004Q1

REPORT INFORMATION
  Report Type: 
  Country: None (occurrence: None)
  Receive Date: 20040126
  Receipt Date: 20031008
  Transmission Date: 20041129
  Serious: No
  Sender: FDA-Public Use
  Company Number: USA030741078

PATIENT
  Age: 75 Year
  Sex: Female
  Weight: 75 kg

DRUGS (6)
  1. FORTEO [Suspect]
     Indication: OSTEOPOROSIS
     Dosage: 20 UG/DAY
     Dates: start: 20030328
  2. ZYRTEC [Concomitant]
  3. CELEBREX [Concomitant]
  4. VITAMIN CAP [Concomitant]
  5. CALCIUM [Concomitant]
  6. LIPITOR [Concomitant]

REACTIONS (3)
  - ASTHENIA [None]
  - BLOOD CALCIUM INCREASED [None]
  - MUSCLE CRAMP [None]
